FAERS Safety Report 14303737 (Version 1)
Quarter: 2017Q4

REPORT INFORMATION
  Report Type: Spontaneous
  Country: US (occurrence: US)
  Receive Date: 20171219
  Receipt Date: 20171219
  Transmission Date: 20180321
  Serious: Yes (Other)
  Sender: FDA-Public Use
  Company Number: None

PATIENT
  Age: 70 Year
  Sex: Female
  Weight: 65.25 kg

DRUGS (8)
  1. VITAMIN D3 [Concomitant]
     Active Substance: CHOLECALCIFEROL
  2. APRANOCLIDE [Suspect]
     Active Substance: APRACLONIDINE HYDROCHLORIDE
     Indication: EYELID PTOSIS
     Route: 047
     Dates: start: 20170914, end: 20170917
  3. ASA [Concomitant]
     Active Substance: ASPIRIN
  4. MVI [Concomitant]
     Active Substance: VITAMINS
  5. WELLBUTRIN [Concomitant]
     Active Substance: BUPROPION HYDROCHLORIDE
  6. SYNTHROID [Concomitant]
     Active Substance: LEVOTHYROXINE SODIUM
  7. EDARBI [Concomitant]
     Active Substance: AZILSARTAN KAMEDOXOMIL
  8. FOSAMAX [Concomitant]
     Active Substance: ALENDRONATE SODIUM

REACTIONS (3)
  - Hypotension [None]
  - Bradycardia [None]
  - Urinary incontinence [None]

NARRATIVE: CASE EVENT DATE: 20170911
